FAERS Safety Report 9444751 (Version 1)
Quarter: 2013Q3

REPORT INFORMATION
  Report Type: Spontaneous
  Country: US (occurrence: None)
  Receive Date: 20130805
  Receipt Date: 20130805
  Transmission Date: 20140515
  Serious: Yes (Other)
  Sender: FDA-Public Use
  Company Number: 13-03461

PATIENT
  Age: 54 Year
  Sex: Female

DRUGS (2)
  1. ASTHMANEFRIN [Suspect]
     Indication: ASTHMA
     Dosage: UNIDENTIFIED 054
     Dates: start: 201306, end: 201308
  2. EZ BREATHE ATOMIZER [Concomitant]

REACTIONS (2)
  - Haemoptysis [None]
  - Device failure [None]
